FAERS Safety Report 14155986 (Version 2)
Quarter: 2018Q2

REPORT INFORMATION
  Report Type: Report from Study
  Country: JP (occurrence: JP)
  Receive Date: 20171103
  Receipt Date: 20180609
  Transmission Date: 20180711
  Serious: Yes (Hospitalization)
  Sender: FDA-Public Use
  Company Number: JP-AMGEN-JPNSP2017165988

PATIENT
  Age: 62 Year
  Sex: Female

DRUGS (8)
  1. ETELCALCETIDE [Suspect]
     Active Substance: ETELCALCETIDE
     Dosage: 7.5 MG, 3 TIMES/WK
     Route: 042
     Dates: start: 20180131, end: 20180227
  2. ETELCALCETIDE [Suspect]
     Active Substance: ETELCALCETIDE
     Dosage: 5 MG, 3 TIMES/WK
     Route: 042
     Dates: start: 20171025, end: 20180130
  3. ETELCALCETIDE [Suspect]
     Active Substance: ETELCALCETIDE
     Dosage: 12.5 MG, 3 TIMES/WK
     Route: 042
     Dates: start: 20180404
  4. MAXACALCITOL [Concomitant]
     Active Substance: MAXACALCITOL
  5. ETELCALCETIDE [Suspect]
     Active Substance: ETELCALCETIDE
     Dosage: 10 MG, 3 TIMES/WK
     Route: 042
     Dates: start: 20180228, end: 20180403
  6. ETELCALCETIDE [Suspect]
     Active Substance: ETELCALCETIDE
     Indication: HYPERPARATHYROIDISM SECONDARY
     Dosage: 5 MG, 3 TIMES/WK
     Route: 042
     Dates: start: 20170508, end: 20170905
  7. ETELCALCETIDE [Suspect]
     Active Substance: ETELCALCETIDE
     Dosage: 7.5 MG, 3 TIMES/WK
     Route: 042
     Dates: start: 20170906, end: 20171024
  8. LANTHANUM CARBONATE. [Concomitant]
     Active Substance: LANTHANUM CARBONATE

REACTIONS (1)
  - Subarachnoid haemorrhage [Recovered/Resolved]

NARRATIVE: CASE EVENT DATE: 20171007
